FAERS Safety Report 14964254 (Version 4)
Quarter: 2018Q4

REPORT INFORMATION
  Report Type: Spontaneous
  Country: IT (occurrence: IT)
  Receive Date: 20180601
  Receipt Date: 20181104
  Transmission Date: 20190204
  Serious: Yes (Hospitalization, Other)
  Sender: FDA-Public Use
  Company Number: PHHY2018IT010615

PATIENT
  Age: 39 Year
  Sex: Female
  Weight: 69 kg

DRUGS (1)
  1. GILENYA [Suspect]
     Active Substance: FINGOLIMOD HYDROCHLORIDE
     Indication: MULTIPLE SCLEROSIS
     Dosage: 0.5 MG, QD
     Route: 048
     Dates: start: 20140724, end: 20180521

REACTIONS (11)
  - Adenosquamous carcinoma of the cervix [Unknown]
  - Cervix carcinoma [Not Recovered/Not Resolved]
  - Central nervous system lesion [Unknown]
  - Gait disturbance [Unknown]
  - Hyperkeratosis [Unknown]
  - Cervix haemorrhage uterine [Not Recovered/Not Resolved]
  - Paraesthesia [Unknown]
  - Cervix disorder [Not Recovered/Not Resolved]
  - Squamous cell carcinoma [Unknown]
  - Multiple sclerosis [Recovering/Resolving]
  - Uterine cancer [Unknown]

NARRATIVE: CASE EVENT DATE: 201707
